FAERS Safety Report 5235063-7 (Version None)
Quarter: 2007Q1

REPORT INFORMATION
  Report Type: 
  Country: None (occurrence: None)
  Receive Date: 20070207
  Receipt Date: 20070126
  Transmission Date: 20070707
  Serious: Yes (Hospitalization)
  Sender: FDA-Public Use
  Company Number: TPA2007A00149

PATIENT
  Sex: Female

DRUGS (2)
  1. ACTOS [Suspect]
     Dosage: UNK., UNKNOWN, PER ORAL
     Route: 048
  2. METFORMIN [Concomitant]

REACTIONS (3)
  - CARDIAC DISORDER [None]
  - FLUID RETENTION [None]
  - WEIGHT INCREASED [None]
